FAERS Safety Report 14845208 (Version 1)
Quarter: 2018Q2

REPORT INFORMATION
  Report Type: Other
  Country: KR (occurrence: KR)
  Receive Date: 20180504
  Receipt Date: 20180504
  Transmission Date: 20180711
  Serious: Yes (Hospitalization, Other)
  Sender: FDA-Public Use
  Company Number: KR-ACTELION-A-CH2018-171357

PATIENT
  Sex: Female

DRUGS (4)
  1. SILDENAFIL. [Concomitant]
     Active Substance: SILDENAFIL
  2. BOSENTAN. [Suspect]
     Active Substance: BOSENTAN
     Indication: PULMONARY HYPERTENSION
     Route: 048
  3. ILOPROST. [Concomitant]
     Active Substance: ILOPROST
  4. NITRIC OXIDE. [Concomitant]
     Active Substance: NITRIC OXIDE

REACTIONS (5)
  - Emphysema [Unknown]
  - Lung volume reduction surgery [Unknown]
  - Hypoxia [Unknown]
  - Pulmonary resection [Unknown]
  - Hypercapnia [Unknown]
